FAERS Safety Report 10066410 (Version 1)
Quarter: 2014Q2

REPORT INFORMATION
  Report Type: Spontaneous
  Country: DE (occurrence: DE)
  Receive Date: 20140408
  Receipt Date: 20140408
  Transmission Date: 20141212
  Serious: Yes (Congenital Anomaly, Other)
  Sender: FDA-Public Use
  Company Number: DE-WATSON-2013-25084

PATIENT
  Sex: Female
  Weight: 2.64 kg

DRUGS (4)
  1. MIRTAZAPINE (UNKNOWN) [Suspect]
     Indication: DEPRESSION
     Route: 064
  2. BISOPROLOL (UNKNOWN) [Suspect]
     Indication: HYPERTENSION
     Route: 064
  3. METOPROLOL (UNKNOWN) [Suspect]
     Indication: HYPERTENSION
     Route: 064
  4. FOLSAURE [Concomitant]
     Indication: PROPHYLAXIS OF NEURAL TUBE DEFECT
     Route: 064

REACTIONS (3)
  - Congenital hydronephrosis [Unknown]
  - Renal aplasia [Not Recovered/Not Resolved]
  - Low birth weight baby [Unknown]
